FAERS Safety Report 18174288 (Version 2)
Quarter: 2020Q3

REPORT INFORMATION
  Report Type: Report from Study
  Country: MX (occurrence: MX)
  Receive Date: 20200820
  Receipt Date: 20200821
  Transmission Date: 20201103
  Serious: Yes (Other)
  Sender: FDA-Public Use
  Company Number: NVSC2020MX197004

PATIENT
  Sex: Male
  Weight: 80 kg

DRUGS (4)
  1. DIOVAN [Suspect]
     Active Substance: VALSARTAN
     Indication: HYPERTENSION
     Dosage: 80 MG, QD 1 DF (AROUND 6 MONTHS AGO)
     Route: 048
  2. MICCIL [Concomitant]
     Indication: MICTURITION DISORDER
     Dosage: 1 DF, QD (AROUND 4 MONTHS AGO)
     Route: 048
  3. EXFORGE HCT [Suspect]
     Active Substance: AMLODIPINE BESYLATE\HYDROCHLOROTHIAZIDE\VALSARTAN
     Indication: PRODUCT USED FOR UNKNOWN INDICATION
     Dosage: 1 DF, QD (5/160/12.5MG)
     Route: 065
  4. MICCIL [Concomitant]
     Indication: RENAL DISORDER

REACTIONS (2)
  - Epistaxis [Unknown]
  - Vascular rupture [Unknown]
